FAERS Safety Report 5145569-7 (Version None)
Quarter: 2006Q4

REPORT INFORMATION
  Report Type: 
  Country: None (occurrence: None)
  Receive Date: 20061102
  Receipt Date: 20061017
  Transmission Date: 20070319
  Serious: Yes (Death, Other)
  Sender: FDA-Public Use
  Company Number: 00/01496-CDS

PATIENT
  Age: 59 Year
  Sex: Male

DRUGS (1)
  1. FLUDARA [Suspect]
     Indication: CHRONIC LYMPHOCYTIC LEUKAEMIA
     Dosage: CYCLE, INTRAVENOUS
     Route: 042

REACTIONS (6)
  - ASCITES [None]
  - DRUG INEFFECTIVE [None]
  - HEPATITIS B [None]
  - SPLENOMEGALY [None]
  - SUBACUTE HEPATIC FAILURE [None]
  - TREATMENT NONCOMPLIANCE [None]
